FAERS Safety Report 21614642 (Version 1)
Quarter: 2022Q4

REPORT INFORMATION
  Report Type: Spontaneous
  Country: DE (occurrence: DE)
  Receive Date: 20221118
  Receipt Date: 20221118
  Transmission Date: 20230113
  Serious: Yes (Hospitalization)
  Sender: FDA-Public Use
  Company Number: DE-ADRED-08394-01

PATIENT
  Age: 88 Year
  Sex: Female
  Weight: 45 kg

DRUGS (8)
  1. TORSEMIDE [Suspect]
     Active Substance: TORSEMIDE
     Indication: Product used for unknown indication
     Dosage: 10 MG, 1-0-0-0
     Route: 065
  2. METAMIZOL [Concomitant]
     Active Substance: METAMIZOLE SODIUM
     Dosage: 500 MG, NEED
     Route: 065
  3. PANTOPRAZOLE SODIUM [Concomitant]
     Active Substance: PANTOPRAZOLE SODIUM
     Dosage: 40 MG, 1-0-0-0
     Route: 065
  4. MIRTAZAPINE [Concomitant]
     Active Substance: MIRTAZAPINE
     Dosage: 15 MG, 0-0-0-1
     Route: 065
  5. METOPROLOL [Concomitant]
     Active Substance: METOPROLOL
     Dosage: 100 MG, 1-0-0-0
     Route: 065
  6. DIGOXIN [Concomitant]
     Active Substance: DIGOXIN
     Dosage: 0.2 MG, 1-0-0-0
     Route: 065
  7. EDOXABAN [Concomitant]
     Active Substance: EDOXABAN
     Dosage: 30 MG, 1-0-0-0
     Route: 065
  8. ZOLPIDEM [Concomitant]
     Active Substance: ZOLPIDEM TARTRATE
     Dosage: 10 MG, 0-0-0-1
     Route: 065

REACTIONS (15)
  - Atrial fibrillation [Unknown]
  - Oedema peripheral [Unknown]
  - Electrocardiogram abnormal [Unknown]
  - Fracture [Unknown]
  - Disturbance in attention [Unknown]
  - Cachexia [Unknown]
  - Memory impairment [Unknown]
  - Systemic infection [Unknown]
  - Dehydration [Unknown]
  - Hypothermia [Unknown]
  - Renal impairment [Unknown]
  - General physical health deterioration [Unknown]
  - Thoracic vertebral fracture [Unknown]
  - Anaemia [Unknown]
  - Fatigue [Unknown]
